FAERS Safety Report 14260158 (Version 1)
Quarter: 2017Q4

REPORT INFORMATION
  Report Type: Spontaneous
  Country: US (occurrence: US)
  Receive Date: 20171207
  Receipt Date: 20171207
  Transmission Date: 20180321
  Serious: No
  Sender: FDA-Public Use
  Company Number: US-ELI_LILLY_AND_COMPANY-US201712001148

PATIENT
  Age: 69 Year
  Sex: Male

DRUGS (3)
  1. ERBITUX [Suspect]
     Active Substance: CETUXIMAB
     Indication: RECTAL CANCER METASTATIC
     Dosage: 940 MG (1 VIAL), UNKNOWN
     Route: 065
     Dates: start: 20171129
  2. ERBITUX [Suspect]
     Active Substance: CETUXIMAB
     Dosage: 940 UNK (4 VIALS), UNK
     Route: 065
     Dates: start: 20171129
  3. OXALIPLATIN. [Concomitant]
     Active Substance: OXALIPLATIN
     Indication: RECTAL CANCER METASTATIC

REACTIONS (2)
  - Swollen tongue [Unknown]
  - Pruritus [Unknown]

NARRATIVE: CASE EVENT DATE: 20171129
